FAERS Safety Report 4510144-1 (Version None)
Quarter: 2004Q4

REPORT INFORMATION
  Report Type: 
  Country: None (occurrence: None)
  Receive Date: 20041124
  Receipt Date: 20041105
  Transmission Date: 20050328
  Serious: Yes (Death, Hospitalization)
  Sender: FDA-Public Use
  Company Number: BR-BRISTOL-MYERS SQUIBB COMPANY-12765160

PATIENT
  Age: 65 Year
  Sex: Female

DRUGS (2)
  1. COUMADIN [Suspect]
     Route: 048
     Dates: start: 20041029, end: 20041105
  2. OTHERS (NOS) [Concomitant]

REACTIONS (6)
  - ASTHENIA [None]
  - DEATH [None]
  - HAEMATOMA [None]
  - SKIN DESQUAMATION [None]
  - SWELLING [None]
  - URTICARIA [None]
